FAERS Safety Report 9932905 (Version 2)
Quarter: 2014Q1

REPORT INFORMATION
  Report Type: Spontaneous
  Country: US (occurrence: US)
  Receive Date: 20140228
  Receipt Date: 20140228
  Transmission Date: 20141002
  Serious: No
  Sender: FDA-Public Use
  Company Number: US-ABBVIE-12P-163-0956034-00

PATIENT
  Sex: Male

DRUGS (1)
  1. ANDROGEL 1% [Suspect]
     Indication: PRODUCT USED FOR UNKNOWN INDICATION
     Dosage: 5MG STICK PACKETS 1%

REACTIONS (2)
  - Malaise [Unknown]
  - Drug effect decreased [Unknown]
